FAERS Safety Report 4902762-3 (Version None)
Quarter: 2006Q1

REPORT INFORMATION
  Report Type: 
  Country: None (occurrence: None)
  Receive Date: 20060207
  Receipt Date: 20060109
  Transmission Date: 20060701
  Serious: Yes (Hospitalization, Disabling)
  Sender: FDA-Public Use
  Company Number: IT-MERCK-0601ITA00005

PATIENT
  Age: 43 Year
  Sex: Female

DRUGS (1)
  1. MAXALT [Suspect]
     Indication: HEADACHE
     Route: 048

REACTIONS (1)
  - DRUG EFFECT DECREASED [None]
